FAERS Safety Report 18570916 (Version 2)
Quarter: 2021Q1

REPORT INFORMATION
  Report Type: Spontaneous
  Country: US (occurrence: US)
  Receive Date: 20201202
  Receipt Date: 20210223
  Transmission Date: 20210419
  Serious: No
  Sender: FDA-Public Use
  Company Number: US-ROCHE-2687211

PATIENT
  Age: 25 Year
  Sex: Female
  Weight: 31.78 kg

DRUGS (10)
  1. EVRYSDI [Suspect]
     Active Substance: RISDIPLAM
     Indication: SPINAL MUSCULAR ATROPHY
     Dosage: FORM STRENGTH: 0.75 MG/1 ML IN A GLASS BOTTLE 80 ML
     Route: 048
     Dates: start: 20200904
  2. CLOTRIMAZOLE. [Concomitant]
     Active Substance: CLOTRIMAZOLE
     Dosage: ONGOING YES
  3. CYCLOBENZAPRINE. [Concomitant]
     Active Substance: CYCLOBENZAPRINE
     Dosage: ONGOING YES
  4. BENADRYL [Concomitant]
     Active Substance: DIPHENHYDRAMINE HYDROCHLORIDE
  5. ZYRTEC (UNITED STATES) [Concomitant]
     Dosage: ONGOING YES
  6. TIZANIDINE. [Concomitant]
     Active Substance: TIZANIDINE
     Dosage: ONGOING YES
  7. MIRALAX [Concomitant]
     Active Substance: POLYETHYLENE GLYCOL 3350
     Dosage: ONGOING YES
  8. IBUPROFEN. [Concomitant]
     Active Substance: IBUPROFEN
     Dosage: ONGOING YES
  9. VOLTAREN [Concomitant]
     Active Substance: DICLOFENAC SODIUM
     Dosage: ONGOING YES
  10. ALBUTEROL. [Concomitant]
     Active Substance: ALBUTEROL
     Dosage: ONGOING YES

REACTIONS (2)
  - Wrong product administered [Unknown]
  - Constipation [Recovered/Resolved]

NARRATIVE: CASE EVENT DATE: 20200928
